FAERS Safety Report 22172095 (Version 2)
Quarter: 2023Q2

REPORT INFORMATION
  Report Type: Other
  Country: CA (occurrence: CA)
  Receive Date: 20230404
  Receipt Date: 20230525
  Transmission Date: 20230721
  Serious: Yes (Other)
  Sender: FDA-Public Use
  Company Number: CA-002147023-NVSC2023CA045299

PATIENT
  Age: 43 Year
  Sex: Female

DRUGS (6)
  1. XOLAIR [Suspect]
     Active Substance: OMALIZUMAB
     Indication: Chronic spontaneous urticaria
     Dosage: 300 MG, (EVERY 4 WEEKS)
     Route: 058
     Dates: start: 20230223
  2. CETIRIZINE HYDROCHLORIDE [Concomitant]
     Active Substance: CETIRIZINE HYDROCHLORIDE
     Indication: Chronic spontaneous urticaria
     Dosage: 3 DOSAGE FORM, QD
     Dates: start: 2018
  3. BENADRYL [Concomitant]
     Active Substance: DIPHENHYDRAMINE HYDROCHLORIDE
     Indication: Chronic spontaneous urticaria
     Dosage: 1 DOSAGE FORM, TID
     Dates: start: 2018
  4. BENADRYL [Concomitant]
     Active Substance: DIPHENHYDRAMINE HYDROCHLORIDE
     Dosage: 50 MG
  5. EPINEPHRINE [Concomitant]
     Active Substance: EPINEPHRINE
     Indication: Product used for unknown indication
     Dosage: UNK, (LEFT ARM)
  6. O2 TABLET [Concomitant]
     Indication: Oxygen saturation decreased
     Dosage: 5 L (NASAL PRONGS)

REACTIONS (11)
  - Anaphylactic shock [Unknown]
  - Peripheral swelling [Unknown]
  - Pruritus [Unknown]
  - Dizziness [Unknown]
  - Erythema [Unknown]
  - Wheezing [Unknown]
  - Cough [Unknown]
  - Sinus congestion [Unknown]
  - Dyspnoea [Unknown]
  - Headache [Unknown]
  - Injection site pain [Unknown]

NARRATIVE: CASE EVENT DATE: 20230223
